FAERS Safety Report 16775682 (Version 1)
Quarter: 2019Q3

REPORT INFORMATION
  Report Type: Spontaneous
  Country: GB (occurrence: GB)
  Receive Date: 20190905
  Receipt Date: 20190905
  Transmission Date: 20191005
  Serious: Yes (Hospitalization)
  Sender: FDA-Public Use
  Company Number: GB-PFIZER INC-2019376028

PATIENT
  Age: 84 Year
  Sex: Male

DRUGS (20)
  1. DOCUSATE [Concomitant]
     Active Substance: DOCUSATE
     Dosage: 400 MG, 1X/DAY
     Route: 048
  2. ALENDRONIC ACID [Concomitant]
     Active Substance: ALENDRONIC ACID
     Dosage: 70 MG, WEEKLY(SATURDAY)
     Route: 048
  3. PREDNISOLONE. [Concomitant]
     Active Substance: PREDNISOLONE
     Dosage: 30 MG, 1X/DAY
     Route: 048
     Dates: end: 20190722
  4. DOXORUBICIN [Suspect]
     Active Substance: DOXORUBICIN
     Indication: B-CELL LYMPHOMA
     Dosage: 50 MG, UNK
     Route: 040
     Dates: start: 20190725
  5. OMEPRAZOLE. [Concomitant]
     Active Substance: OMEPRAZOLE
     Dosage: 20 MG, 1X/DAY
     Route: 048
  6. HYPROMELLOSE [Concomitant]
     Active Substance: HYPROMELLOSES
     Dosage: 1 GTT, AS NEEDED
     Route: 031
     Dates: start: 20190716
  7. RITUXIMAB. [Suspect]
     Active Substance: RITUXIMAB
     Indication: B-CELL LYMPHOMA
     Dosage: 700 MG, UNK
     Route: 041
     Dates: start: 20190725
  8. IBUPROFEN. [Concomitant]
     Active Substance: IBUPROFEN
     Dosage: UNK, 3X/DAY (APPLY THREE TIMES DAILY AS NECESSARY)
     Route: 062
  9. PREDNISOLONE. [Concomitant]
     Active Substance: PREDNISOLONE
     Dosage: 75 MG, 1X/DAY
     Route: 048
     Dates: start: 20190725, end: 20190729
  10. CYCLOPHOSPHAMIDE. [Suspect]
     Active Substance: CYCLOPHOSPHAMIDE
     Indication: B-CELL LYMPHOMA
     Dosage: 500 MG, UNK
     Route: 040
     Dates: start: 20190725
  11. LENOGRASTIM [Concomitant]
     Active Substance: LENOGRASTIM
     Dosage: 33.6 MILLION, 1X/DAY
     Route: 058
     Dates: start: 20190801, end: 20190804
  12. CYCLIZINE [Concomitant]
     Active Substance: CYCLIZINE
     Dosage: 50 MG, 3X/DAY (AS NECESSARY)
     Route: 048
     Dates: start: 20190725
  13. CHLORAMPHENICOL [Concomitant]
     Active Substance: CHLORAMPHENICOL
     Dosage: 4 DF, DAILY (APPLY FOUR TIMES DAILY)
     Route: 031
     Dates: start: 20190718
  14. ACICLOVIR [Concomitant]
     Active Substance: ACYCLOVIR
     Dosage: 800 MG, 1X/DAY
     Route: 048
     Dates: start: 20190725
  15. ALLOPURINOL. [Concomitant]
     Active Substance: ALLOPURINOL
     Dosage: 300 MG, 1X/DAY
     Route: 048
     Dates: start: 20190725, end: 20190801
  16. MACROGOL [Concomitant]
     Active Substance: POLYETHYLENE GLYCOLS
     Dosage: 13.7 G, 1X/DAY (1 SACHETY OM)
     Route: 048
  17. NAPROXEN. [Concomitant]
     Active Substance: NAPROXEN
     Dosage: 500 MG, 1X/DAY
     Route: 048
  18. ONDANSETRON [Concomitant]
     Active Substance: ONDANSETRON
     Dosage: 16 MG, 1X/DAY
     Route: 048
     Dates: start: 20190725, end: 20190727
  19. VINCRISTINE SULFATE. [Suspect]
     Active Substance: VINCRISTINE SULFATE
     Indication: B-CELL LYMPHOMA
     Dosage: 1 MG, UNK
     Route: 041
     Dates: start: 20190725
  20. PARACETAMOL [Concomitant]
     Active Substance: ACETAMINOPHEN
     Dosage: 500 MG, 4X/DAY (500 MG - 1G FOUR TIMES DAILY AS NECESSARY)
     Route: 048

REACTIONS (1)
  - Supraventricular tachycardia [Recovered/Resolved]

NARRATIVE: CASE EVENT DATE: 20190730
